FAERS Safety Report 4384615-5 (Version None)
Quarter: 2004Q2

REPORT INFORMATION
  Report Type: 
  Country: None (occurrence: None)
  Receive Date: 20040625
  Receipt Date: 20030709
  Transmission Date: 20050107
  Serious: No
  Sender: FDA-Public Use
  Company Number: US-BRISTOL-MYERS SQUIBB COMPANY-12322657

PATIENT
  Age: 68 Year
  Sex: Female
  Weight: 77 kg

DRUGS (7)
  1. SINEMET [Suspect]
     Indication: PARKINSON'S DISEASE
     Dosage: DECREASED TO 1/2 OF A TABLET THREE TIMES DAILY 2 TO 3 MONTHS AGO
     Route: 048
  2. REQUIP [Concomitant]
  3. COMTAN [Concomitant]
  4. SELEGILINE HCL TABS [Concomitant]
  5. LIPITOR [Concomitant]
  6. BEXTRA [Concomitant]
  7. FOSAMAX [Concomitant]

REACTIONS (1)
  - THERAPEUTIC RESPONSE DECREASED [None]
